FAERS Safety Report 20340854 (Version 2)
Quarter: 2022Q1

REPORT INFORMATION
  Report Type: Report from Study
  Country: CA (occurrence: CA)
  Receive Date: 20220117
  Receipt Date: 20220203
  Transmission Date: 20220423
  Serious: Yes (Hospitalization, Other)
  Sender: FDA-Public Use
  Company Number: CA-JNJFOC-20211162896

PATIENT
  Age: 47 Year
  Sex: Male

DRUGS (7)
  1. SELEXIPAG [Suspect]
     Active Substance: SELEXIPAG
     Indication: Heart disease congenital
     Route: 048
     Dates: start: 20211124
  2. SELEXIPAG [Suspect]
     Active Substance: SELEXIPAG
     Route: 048
  3. SELEXIPAG [Suspect]
     Active Substance: SELEXIPAG
     Route: 048
  4. SELEXIPAG [Suspect]
     Active Substance: SELEXIPAG
     Route: 048
  5. MACITENTAN [Suspect]
     Active Substance: MACITENTAN
     Indication: Heart disease congenital
     Route: 048
  6. TADALAFIL [Concomitant]
     Active Substance: TADALAFIL
  7. ASCORBIC ACID [Concomitant]
     Active Substance: ASCORBIC ACID

REACTIONS (11)
  - Nausea [Recovering/Resolving]
  - Headache [Recovering/Resolving]
  - Head discomfort [Recovering/Resolving]
  - Chills [Not Recovered/Not Resolved]
  - Dizziness [Unknown]
  - Abdominal distension [Unknown]
  - Pain in jaw [Unknown]
  - Diarrhoea [Unknown]
  - Epistaxis [Not Recovered/Not Resolved]
  - Product use in unapproved indication [Unknown]
  - Off label use [Unknown]

NARRATIVE: CASE EVENT DATE: 20211125
